FAERS Safety Report 5742899-2 (Version None)
Quarter: 2008Q2

REPORT INFORMATION
  Report Type: 
  Country: None (occurrence: None)
  Receive Date: 20080515
  Receipt Date: 20080515
  Transmission Date: 20081010
  Serious: Yes (Life-Threatening, Hospitalization)
  Sender: FDA-Public Use
  Company Number: None

PATIENT
  Age: 82 Year
  Sex: Female
  Weight: 54.4316 kg

DRUGS (1)
  1. DIGITEK 0.25 MG BERTEK [Suspect]
     Indication: HEART RATE IRREGULAR
     Dosage: 1 TABLET BY MOUTH DAILY PO
     Route: 048
     Dates: start: 20080207, end: 20080428

REACTIONS (3)
  - CEREBROVASCULAR ACCIDENT [None]
  - PHARMACEUTICAL PRODUCT COMPLAINT [None]
  - THERAPEUTIC AGENT TOXICITY [None]
